FAERS Safety Report 12811242 (Version 1)
Quarter: 2016Q4

REPORT INFORMATION
  Report Type: Spontaneous
  Country: CA (occurrence: US)
  Receive Date: 20161004
  Receipt Date: 20161004
  Transmission Date: 20170207
  Serious: Yes (Disabling)
  Sender: FDA-Public Use
  Company Number: None

PATIENT
  Age: 42 Year
  Sex: Female
  Weight: 60.75 kg

DRUGS (8)
  1. LONG LIFE VITALITY SUPPLEMENTS [Concomitant]
  2. COLLAGEN BY VITAL PROTEINS [Concomitant]
  3. MAGNESIUM BISGLYCINATE [Concomitant]
  4. ARNICA CREAM [Concomitant]
  5. EPSOM SALT BATHS [Concomitant]
  6. CIPROFLOXACIN HYDROCHLORIDE. [Suspect]
     Active Substance: CIPROFLOXACIN HYDROCHLORIDE
     Indication: EAR INFECTION
     Dosage: ?          QUANTITY:20 TABLET(S);?
     Route: 048
     Dates: start: 20160819, end: 20160828
  7. CIPROFLOXACIN HYDROCHLORIDE. [Suspect]
     Active Substance: CIPROFLOXACIN HYDROCHLORIDE
     Indication: CELLULITIS
     Dosage: ?          QUANTITY:20 TABLET(S);?
     Route: 048
     Dates: start: 20160819, end: 20160828
  8. DEEP BLUE COMPLEX [Concomitant]

REACTIONS (3)
  - Tendon pain [None]
  - Drug dispensing error [None]
  - Tendon disorder [None]

NARRATIVE: CASE EVENT DATE: 20160820
